FAERS Safety Report 17030960 (Version 3)
Quarter: 2019Q4

REPORT INFORMATION
  Report Type: Spontaneous
  Country: GR (occurrence: GR)
  Receive Date: 20191114
  Receipt Date: 20191216
  Transmission Date: 20200122
  Serious: Yes (Life-Threatening, Hospitalization, Other)
  Sender: FDA-Public Use
  Company Number: GR-MYLANLABS-2019M1109192

PATIENT
  Age: 79 Year
  Sex: Male

DRUGS (3)
  1. CLOPIDOGREL [Suspect]
     Active Substance: CLOPIDOGREL BISULFATE
     Indication: ACUTE CORONARY SYNDROME
     Dosage: 75 MILLIGRAM
     Route: 065
  2. ACETYLSALICYLIC ACID [Suspect]
     Active Substance: ASPIRIN
     Indication: ACUTE CORONARY SYNDROME
     Dosage: 100 MILLIGRAM
     Route: 065
  3. FONDAPARINUX [Suspect]
     Active Substance: FONDAPARINUX
     Indication: ACUTE CORONARY SYNDROME
     Dosage: 2.5 MILLIGRAM
     Route: 065

REACTIONS (8)
  - Cardiac arrest [Recovered/Resolved]
  - Anuria [Recovered/Resolved]
  - Pericardial mass [Recovered/Resolved]
  - Pericardial effusion [Recovered/Resolved]
  - Condition aggravated [Recovered/Resolved]
  - Cardiac tamponade [Recovered/Resolved]
  - Blood pressure decreased [Recovered/Resolved]
  - Pericardial haemorrhage [Recovered/Resolved]
